FAERS Safety Report 4558720-4 (Version None)
Quarter: 2005Q1

REPORT INFORMATION
  Report Type: 
  Country: None (occurrence: None)
  Receive Date: 20050119
  Receipt Date: 20050107
  Transmission Date: 20050727
  Serious: Yes (Disabling)
  Sender: FDA-Public Use
  Company Number: 20111

PATIENT
  Age: 82 Year
  Sex: Male

DRUGS (3)
  1. ALDARA [Suspect]
     Indication: BASAL CELL CARCINOMA
     Dosage: 2 IN 1 DAY(S)), TOPICAL
     Route: 061
     Dates: start: 20020718, end: 20020726
  2. FOSAMAX [Concomitant]
  3. AVAPRO [Concomitant]

REACTIONS (4)
  - APPLICATION SITE DERMATITIS [None]
  - ARTHRALGIA [None]
  - DEAFNESS [None]
  - TINNITUS [None]
